FAERS Safety Report 8797466 (Version 2)
Quarter: 2013Q1

REPORT INFORMATION
  Report Type: Spontaneous
  Country: BR (occurrence: BR)
  Receive Date: 20120920
  Receipt Date: 20130328
  Transmission Date: 20140127
  Serious: Yes (Death, Hospitalization)
  Sender: FDA-Public Use
  Company Number: BR-BAYER-2012-097137

PATIENT
  Age: 91 Year
  Sex: Male
  Weight: 58.05 kg

DRUGS (3)
  1. AVALOX [Suspect]
     Indication: PNEUMONIA
     Dosage: TOOK ONLY ONE TABLET AND DISCONTINUED THE TREATMENT
     Route: 048
     Dates: start: 20110831, end: 20110831
  2. CAPTOPRIL [Concomitant]
     Indication: HYPERTENSION
     Dosage: 1 DF, BID
     Route: 048
     Dates: start: 1991
  3. UNKNOWN DRUG [Concomitant]
     Indication: DIABETES MELLITUS
     Dosage: 1 DF, BID
     Route: 048
     Dates: start: 2001

REACTIONS (6)
  - Gastric cancer [Fatal]
  - Syncope [Unknown]
  - Malaise [Unknown]
  - Adverse event [Unknown]
  - Vomiting [Unknown]
  - Pyrexia [None]
